FAERS Safety Report 5967865-3 (Version None)
Quarter: 2008Q4

REPORT INFORMATION
  Report Type: 
  Country: None (occurrence: None)
  Receive Date: 20081126
  Receipt Date: 20081121
  Transmission Date: 20090506
  Serious: Yes (Other)
  Sender: FDA-Public Use
  Company Number: JP-ASTRAZENECA-2008AP09044

PATIENT
  Age: 78 Year
  Sex: Male

DRUGS (4)
  1. ZOLADEX [Suspect]
     Indication: PROSTATE CANCER
     Route: 058
     Dates: start: 20081024
  2. PROSTAL [Suspect]
     Route: 048
     Dates: start: 20081011, end: 20081121
  3. AMLODIN [Concomitant]
     Route: 048
  4. UNKNOWNDRUG [Concomitant]
     Route: 048

REACTIONS (1)
  - JAUNDICE [None]
